FAERS Safety Report 6778793-8 (Version None)
Quarter: 2010Q2

REPORT INFORMATION
  Report Type: 
  Country: None (occurrence: None)
  Receive Date: 20100618
  Receipt Date: 20090810
  Transmission Date: 20101027
  Serious: Yes (Life-Threatening, Hospitalization, Other)
  Sender: FDA-Public Use
  Company Number: A0790404A

PATIENT
  Sex: Female

DRUGS (1)
  1. HYCAMTIN [Suspect]
     Dosage: 1.5MGM2 SINGLE DOSE
     Route: 042
     Dates: start: 20090101, end: 20090101

REACTIONS (1)
  - SEPSIS [None]
